FAERS Safety Report 13670605 (Version 1)
Quarter: 2017Q2

REPORT INFORMATION
  Report Type: Spontaneous
  Country: FR (occurrence: FR)
  Receive Date: 20170620
  Receipt Date: 20170620
  Transmission Date: 20170830
  Serious: Yes (Hospitalization)
  Sender: FDA-Public Use
  Company Number: FR-PFIZER INC-2017261709

PATIENT
  Age: 38 Year
  Sex: Male

DRUGS (2)
  1. LOSARTAN. [Concomitant]
     Active Substance: LOSARTAN
  2. DOSTINEX [Suspect]
     Active Substance: CABERGOLINE
     Indication: ADENOMA BENIGN
     Dosage: UNK
     Route: 048

REACTIONS (1)
  - Atrial fibrillation [Not Recovered/Not Resolved]

NARRATIVE: CASE EVENT DATE: 20170420
